FAERS Safety Report 9250882 (Version 1)
Quarter: 2013Q2

REPORT INFORMATION
  Report Type: Spontaneous
  Country: BR (occurrence: BR)
  Receive Date: 20130424
  Receipt Date: 20130424
  Transmission Date: 20140414
  Serious: Yes (Other)
  Sender: FDA-Public Use
  Company Number: PHHY2013BR028200

PATIENT
  Sex: Male
  Weight: 92 kg

DRUGS (4)
  1. SANDOSTATIN LAR [Suspect]
     Indication: PITUITARY TUMOUR
     Dosage: 20 MG, PER MONTH
     Route: 030
  2. SANDOSTATIN LAR [Suspect]
     Dosage: 30 MG, PER MONTH
     Route: 030
  3. SANDOSTATIN LAR [Suspect]
     Dosage: 40 MG, PER MONTH
     Route: 030
  4. CABERGOLINE [Concomitant]
     Indication: PITUITARY TUMOUR
     Dosage: 1 DF, QW3
     Route: 048

REACTIONS (3)
  - Depression [Not Recovered/Not Resolved]
  - Insomnia [Not Recovered/Not Resolved]
  - Nervousness [Not Recovered/Not Resolved]
